FAERS Safety Report 8381562-9 (Version None)
Quarter: 2012Q2

REPORT INFORMATION
  Report Type: 
  Country: None (occurrence: None)
  Receive Date: 20120523
  Receipt Date: 20120516
  Transmission Date: 20120825
  Serious: Yes (Other)
  Sender: FDA-Public Use
  Company Number: US-RB-040489-12

PATIENT
  Sex: Female

DRUGS (4)
  1. BUSPAR [Suspect]
     Indication: ANXIETY
     Dosage: DOSING DETAILS UNKNOWN
     Route: 048
     Dates: start: 20120501, end: 20120504
  2. SUBOXONE [Suspect]
     Indication: DRUG DEPENDENCE
     Dosage: TAPERED DOSES
     Route: 060
     Dates: start: 20120501, end: 20120504
  3. XANAX [Suspect]
     Dosage: DOSING DETAILS UNKNOWN
     Route: 048
     Dates: start: 20120504
  4. XANAX [Suspect]
     Indication: ANXIETY
     Route: 048
     Dates: start: 20120101, end: 20120430

REACTIONS (15)
  - OFF LABEL USE [None]
  - DRUG INEFFECTIVE [None]
  - HIATUS HERNIA [None]
  - NAUSEA [None]
  - COLD SWEAT [None]
  - VOMITING [None]
  - CHILLS [None]
  - TREMOR [None]
  - GASTROINTESTINAL ULCER HAEMORRHAGE [None]
  - HEADACHE [None]
  - HOT FLUSH [None]
  - ANXIETY [None]
  - PANIC ATTACK [None]
  - DRUG WITHDRAWAL SYNDROME [None]
  - ABDOMINAL PAIN UPPER [None]
